FAERS Safety Report 4479337-6 (Version None)
Quarter: 2004Q4

REPORT INFORMATION
  Report Type: 
  Country: None (occurrence: None)
  Receive Date: 20041015
  Receipt Date: 20040609
  Transmission Date: 20050328
  Serious: Yes (Hospitalization)
  Sender: FDA-Public Use
  Company Number: A0439081A

PATIENT
  Age: 51 Year
  Sex: Female

DRUGS (6)
  1. CONTAC 12 HOUR [Suspect]
     Indication: NASOPHARYNGITIS
     Dosage: ORAL
     Route: 048
  2. BC MULTI-SYMPTOM ALLERGY SINUS COLD POWDER (BC MULTI ALLER SINUS COLD) [Suspect]
     Dosage: ORAL
     Route: 048
     Dates: start: 19981226, end: 19981228
  3. CONTAC 12 HOUR [Suspect]
     Dosage: ORAL
     Route: 048
  4. ENTEX CAP [Suspect]
     Dates: start: 19981225, end: 19981228
  5. WARFARIN SODIUM [Suspect]
     Indication: PROPHYLAXIS
  6. ALKA-SELTZER PLUS COLD MD (FORMULATION UNKNOWN) (ALKA-SELTZER PLUS COL [Suspect]
     Dates: start: 19981225, end: 19981228

REACTIONS (1)
  - CEREBRAL HAEMORRHAGE [None]
